FAERS Safety Report 8891061 (Version 5)
Quarter: 2013Q3

REPORT INFORMATION
  Report Type: Report from Study
  Country: ES (occurrence: ES)
  Receive Date: 20121107
  Receipt Date: 20130905
  Transmission Date: 20140515
  Serious: Yes (Hospitalization)
  Sender: FDA-Public Use
  Company Number: ES-JNJFOC-20121101749

PATIENT
  Age: 37 Year
  Sex: Male
  Weight: 59.7 kg

DRUGS (14)
  1. REMICADE [Suspect]
     Indication: COLITIS ULCERATIVE
     Route: 042
     Dates: start: 20110112
  2. REMICADE [Suspect]
     Indication: COLITIS ULCERATIVE
     Dosage: 3RD DOSE
     Route: 042
     Dates: start: 20101201
  3. REMICADE [Suspect]
     Indication: COLITIS ULCERATIVE
     Dosage: 3RD DOSE
     Route: 042
     Dates: start: 20101201
  4. REMICADE [Suspect]
     Indication: COLITIS ULCERATIVE
     Dosage: 1ST DOSE
     Route: 042
     Dates: start: 20101020
  5. REMICADE [Suspect]
     Indication: COLITIS ULCERATIVE
     Dosage: INDUCTION DOSE
     Route: 042
     Dates: start: 20100531
  6. REMICADE [Suspect]
     Indication: COLITIS ULCERATIVE
     Dosage: INDUCTION DOSE
     Route: 042
     Dates: start: 20100503
  7. REMICADE [Suspect]
     Indication: COLITIS ULCERATIVE
     Dosage: INDUCTION DOSE
     Route: 042
     Dates: start: 20100419
  8. REMICADE [Suspect]
     Indication: COLITIS ULCERATIVE
     Route: 042
     Dates: start: 20110530, end: 20110530
  9. REMICADE [Suspect]
     Indication: COLITIS ULCERATIVE
     Route: 042
     Dates: start: 20110309
  10. REMICADE [Suspect]
     Indication: COLITIS ULCERATIVE
     Route: 042
     Dates: start: 20110418
  11. REMICADE [Suspect]
     Indication: COLITIS ULCERATIVE
     Dosage: 2ND DOSE
     Route: 042
     Dates: start: 20101103
  12. SALOFALK [Concomitant]
     Indication: ANORECTAL DISORDER
     Dosage: START AND STOP DATES ARE ILLEGIBLE.  ??INDICATION: ILLEGIBLE RECTAL ACTIVITY
     Route: 054
  13. SALOFALK [Concomitant]
     Indication: ANORECTAL DISORDER
     Dosage: START AND STOP DATES ARE ILLEGIBLE;  ??INDICATION: RECTAL ACTIVITY
     Route: 054
  14. ALL OTHER MEDICATIONS [Concomitant]
     Indication: VENOUS THROMBOSIS
     Dosage: DRUG NAME IS ILLEGIBLE
     Route: 048
     Dates: start: 20101025, end: 20121025

REACTIONS (1)
  - Proctocolectomy [Recovered/Resolved]
